FAERS Safety Report 23175129 (Version 1)
Quarter: 2023Q4

REPORT INFORMATION
  Report Type: Spontaneous
  Country: JP (occurrence: JP)
  Receive Date: 20231112
  Receipt Date: 20231112
  Transmission Date: 20240110
  Serious: No
  Sender: FDA-Public Use
  Company Number: JP-WW-2023-05509-LUN

PATIENT
  Age: 94 Year
  Sex: Female

DRUGS (5)
  1. LUNESTA [Suspect]
     Active Substance: ESZOPICLONE
     Route: 048
  2. OLANZAPINE [Concomitant]
     Active Substance: OLANZAPINE
     Route: 065
  3. RISPERIDONE [Concomitant]
     Active Substance: RISPERIDONE
     Route: 065
  4. FLUVOXAMINE MALEATE [Concomitant]
     Active Substance: FLUVOXAMINE MALEATE
     Route: 065
  5. QUETIAPINE [Concomitant]
     Active Substance: QUETIAPINE
     Route: 065

REACTIONS (5)
  - Somnolence [Recovering/Resolving]
  - Defiant behaviour [Recovering/Resolving]
  - Constipation [Recovering/Resolving]
  - Affect lability [Unknown]
  - Oedema [Recovered/Resolved]
